FAERS Safety Report 24377065 (Version 2)
Quarter: 2024Q4

REPORT INFORMATION
  Report Type: Report from Study
  Country: BG (occurrence: BG)
  Receive Date: 20240930
  Receipt Date: 20241021
  Transmission Date: 20250115
  Serious: Yes (Death, Hospitalization, Other)
  Sender: ABBVIE
  Company Number: BG-ABBVIE-5943303

PATIENT
  Age: 69 Year
  Sex: Male

DRUGS (2)
  1. CARBIDOPA\LEVODOPA [Suspect]
     Active Substance: CARBIDOPA\LEVODOPA
     Indication: Parkinson^s disease
     Dosage: MD-6,0 ML CR- 2,5ML/H EX- 0,5ML
     Route: 050
     Dates: start: 20100518, end: 20240925
  2. CARBIDOPA\LEVODOPA [Suspect]
     Active Substance: CARBIDOPA\LEVODOPA

REACTIONS (2)
  - Diarrhoea [Fatal]
  - Gastrointestinal viral infection [Fatal]

NARRATIVE: CASE EVENT DATE: 20230923
